APPROVED DRUG PRODUCT: CYCLAINE
Active Ingredient: HEXYLCAINE HYDROCHLORIDE
Strength: 5%
Dosage Form/Route: SOLUTION;TOPICAL
Application: N008472 | Product #001
Applicant: MERCK AND CO INC
Approved: Approved Prior to Jan 1, 1982 | RLD: No | RS: No | Type: DISCN